FAERS Safety Report 6511555-5 (Version None)
Quarter: 2009Q4

REPORT INFORMATION
  Report Type: 
  Country: None (occurrence: None)
  Receive Date: 20091222
  Receipt Date: 20090420
  Transmission Date: 20100525
  Serious: No
  Sender: FDA-Public Use
  Company Number: US-ASTRAZENECA-2009UW09980

PATIENT
  Age: 69 Year
  Sex: Male
  Weight: 99.8 kg

DRUGS (6)
  1. CRESTOR [Suspect]
     Indication: BLOOD CHOLESTEROL INCREASED
     Route: 048
     Dates: start: 20090201
  2. CRESTOR [Suspect]
     Route: 048
  3. OMEPRAZOLE [Concomitant]
  4. BABY ASPIRIN [Concomitant]
  5. FISH OIL [Concomitant]
  6. CLARITIN [Concomitant]

REACTIONS (5)
  - ANGER [None]
  - FATIGUE [None]
  - FEELING ABNORMAL [None]
  - INSOMNIA [None]
  - NERVOUSNESS [None]
